FAERS Safety Report 9239705 (Version 2)
Quarter: 2013Q2

REPORT INFORMATION
  Report Type: Report from Study
  Country: US (occurrence: US)
  Receive Date: 20130418
  Receipt Date: 20130603
  Transmission Date: 20140414
  Serious: Yes (Hospitalization, Other)
  Sender: FDA-Public Use
  Company Number: US-OTSUKA-US-2013-10311

PATIENT
  Age: 53 Year
  Sex: Female

DRUGS (6)
  1. SAMSCA [Suspect]
     Indication: HYPONATRAEMIA
     Dosage: 15 MG MILLIGRAM(S), UNK
     Dates: start: 20120107
  2. SAMSCA [Suspect]
     Dosage: 15 MG MILLIGRAM(S), SINGLE
     Dates: start: 20120104, end: 20120104
  3. SAMSCA [Suspect]
     Dosage: 7.5 MG MILLIGRAM(S), QD
  4. PREDNISONE [Concomitant]
     Indication: PRODUCT USED FOR UNKNOWN INDICATION
     Dosage: 10 MG MILLIGRAM(S), UNK
  5. ATIVAN [Concomitant]
     Indication: PRODUCT USED FOR UNKNOWN INDICATION
     Dosage: 8 MG MILLIGRAM(S), UNK
  6. NEXIUM [Concomitant]
     Indication: PRODUCT USED FOR UNKNOWN INDICATION
     Dosage: 40 MG MILLIGRAM(S), UNK

REACTIONS (6)
  - Rapid correction of hyponatraemia [Recovered/Resolved]
  - Confusional state [Unknown]
  - Diarrhoea [Unknown]
  - Irritability [Unknown]
  - Fatigue [Unknown]
  - Mental impairment [Unknown]
